FAERS Safety Report 8810401 (Version 6)
Quarter: 2013Q2

REPORT INFORMATION
  Report Type: Spontaneous
  Country: US (occurrence: US)
  Receive Date: 20120926
  Receipt Date: 20130624
  Transmission Date: 20140414
  Serious: Yes (Hospitalization, Other)
  Sender: FDA-Public Use
  Company Number: US-MERCK-1209USA007641

PATIENT
  Sex: Female
  Weight: 48 kg

DRUGS (2)
  1. FOSAMAX [Suspect]
     Indication: OSTEOPOROSIS
     Dosage: 10 MG, QD
     Route: 048
     Dates: start: 199509, end: 200712
  2. CALCIUM D3 [Concomitant]
     Dosage: 500 MG, QD
     Dates: start: 1995

REACTIONS (59)
  - Femur fracture [Unknown]
  - Intramedullary rod insertion [Unknown]
  - Intramedullary rod insertion [Unknown]
  - Removal of internal fixation [Unknown]
  - Intramedullary rod insertion [Unknown]
  - Osteonecrosis [Unknown]
  - Osteonecrosis [Unknown]
  - Knee arthroplasty [Unknown]
  - Myocardial infarction [Unknown]
  - Rotator cuff repair [Unknown]
  - Colostomy [Unknown]
  - Colostomy closure [Unknown]
  - Fracture nonunion [Unknown]
  - Hip arthroplasty [Unknown]
  - Intervertebral disc operation [Unknown]
  - Escherichia infection [Recovered/Resolved]
  - Wound infection staphylococcal [Recovered/Resolved]
  - Incisional drainage [Unknown]
  - Cerebrovascular accident [Unknown]
  - Adrenal insufficiency [Recovering/Resolving]
  - Adrenal insufficiency [Unknown]
  - Chest pain [Recovered/Resolved]
  - Anaemia of chronic disease [Not Recovered/Not Resolved]
  - Osteomyelitis [Unknown]
  - Bursa removal [Unknown]
  - Bursitis [Unknown]
  - Herpes zoster [Unknown]
  - Hypertension [Unknown]
  - Blood cholesterol increased [Unknown]
  - Colitis microscopic [Unknown]
  - Migraine [Unknown]
  - Fibromyalgia [Unknown]
  - Haemorrhoid operation [Unknown]
  - Crohn^s disease [Unknown]
  - Shoulder operation [Unknown]
  - Ovarian cyst [Unknown]
  - Dysuria [Unknown]
  - Dyspnoea exertional [Unknown]
  - Dyspnoea [Unknown]
  - Confusional state [Recovered/Resolved]
  - Electrocardiogram ST segment depression [Unknown]
  - Cholelithiasis [Unknown]
  - Red blood cell sedimentation rate increased [Recovering/Resolving]
  - Polymyalgia rheumatica [Unknown]
  - Blood potassium decreased [Unknown]
  - Osteoarthritis [Unknown]
  - QRS axis abnormal [Unknown]
  - Bursa removal [Unknown]
  - Tenotomy [Unknown]
  - Uterine dilation and curettage [Unknown]
  - Depression [Unknown]
  - Pain [Recovered/Resolved]
  - Blood albumin decreased [Unknown]
  - Faeces discoloured [Recovered/Resolved]
  - Myalgia [Unknown]
  - Arthralgia [Unknown]
  - Headache [Not Recovered/Not Resolved]
  - Abdominal pain upper [Unknown]
  - Gastrooesophageal reflux disease [Unknown]
